FAERS Safety Report 6482723-6 (Version None)
Quarter: 2009Q4

REPORT INFORMATION
  Report Type: 
  Country: None (occurrence: None)
  Receive Date: 20091203
  Receipt Date: 20091120
  Transmission Date: 20100525
  Serious: Yes (Hospitalization, Other)
  Sender: FDA-Public Use
  Company Number: 2009AL007459

PATIENT
  Age: 36 Year
  Sex: Male

DRUGS (2)
  1. IRINOTECAN HCL [Suspect]
  2. CAPECITABINE [Concomitant]

REACTIONS (3)
  - BODY TEMPERATURE DECREASED [None]
  - NEUTROPENIA [None]
  - TREMOR [None]
